FAERS Safety Report 6146801-3 (Version None)
Quarter: 2009Q2

REPORT INFORMATION
  Report Type: 
  Country: None (occurrence: None)
  Receive Date: 20090403
  Receipt Date: 20090403
  Transmission Date: 20091009
  Serious: No
  Sender: FDA-Public Use
  Company Number: None

PATIENT
  Sex: Female
  Weight: 66.5 kg

DRUGS (1)
  1. TEMOZOLOMIDE [Suspect]
     Dosage: 3570 MG

REACTIONS (1)
  - LYMPHOCYTE COUNT DECREASED [None]
